FAERS Safety Report 9156563 (Version 1)
Quarter: 2013Q1

REPORT INFORMATION
  Report Type: Spontaneous
  Country: US (occurrence: None)
  Receive Date: 20130208
  Receipt Date: 20130208
  Transmission Date: 20140127
  Serious: Yes (Hospitalization)
  Sender: FDA-Public Use
  Company Number: 2013-0478

PATIENT
  Age: 70 Year
  Sex: Male
  Weight: 73 kg

DRUGS (2)
  1. LANREOTIDE ACETATE [Suspect]
     Indication: ACROMEGALY
     Dosage: 120 MG 9120 MG, 1 IN 28 D), SUBCUTANEOUS
     Route: 058
  2. LUPRON [Suspect]

REACTIONS (21)
  - Hepatic cancer [None]
  - Diarrhoea [None]
  - Dyspnoea [None]
  - Fatigue [None]
  - Asthenia [None]
  - Drug ineffective [None]
  - Constipation [None]
  - Heart rate decreased [None]
  - Injection site swelling [None]
  - Laboratory test abnormal [None]
  - Weight decreased [None]
  - Injection site pain [None]
  - Injection site haemorrhage [None]
  - Dark circles under eyes [None]
  - Fatigue [None]
  - Asthenia [None]
  - Decreased appetite [None]
  - Pulmonary thrombosis [None]
  - Pulmonary oedema [None]
  - Bone disorder [None]
  - Unevaluable event [None]
